FAERS Safety Report 18297717 (Version 1)
Quarter: 2020Q3

REPORT INFORMATION
  Report Type: Spontaneous
  Country: US (occurrence: US)
  Receive Date: 20200922
  Receipt Date: 20200922
  Transmission Date: 20201103
  Serious: No
  Sender: FDA-Public Use
  Company Number: US-AMNEAL PHARMACEUTICALS-2020-AMRX-02463

PATIENT
  Age: 83 Year
  Sex: Female
  Weight: 81 kg

DRUGS (1)
  1. AZELASTINE HYDROCHLORIDE. [Suspect]
     Active Substance: AZELASTINE HYDROCHLORIDE
     Indication: RHINITIS ALLERGIC
     Dosage: 2 DOSAGE FORM, 2 /DAY (1 SPRAY EACH NOSTRIL TWICE A DAY)
     Route: 045
     Dates: start: 20200810, end: 20200810

REACTIONS (2)
  - Nasal discomfort [Recovered/Resolved]
  - Product substitution issue [Unknown]

NARRATIVE: CASE EVENT DATE: 20200810
